FAERS Safety Report 9565065 (Version 1)
Quarter: 2013Q3

REPORT INFORMATION
  Report Type: Spontaneous
  Country: AU (occurrence: AU)
  Receive Date: 20130930
  Receipt Date: 20130930
  Transmission Date: 20140515
  Serious: Yes (Hospitalization)
  Sender: FDA-Public Use
  Company Number: AU-AMGEN-AUSSP2013067655

PATIENT
  Age: 91 Year
  Sex: Female

DRUGS (3)
  1. XGEVA [Suspect]
     Indication: METASTASES TO BONE
     Dosage: 120 MG, UNK
     Route: 058
  2. CHOLECALCIFEROL [Concomitant]
     Dosage: 3000 IU, UNK
  3. CALCIUM [Concomitant]
     Dosage: 600 MG, BID

REACTIONS (4)
  - Tetany [Unknown]
  - Paraesthesia [Unknown]
  - Paraesthesia oral [Unknown]
  - Hypocalcaemia [Unknown]
